FAERS Safety Report 14505116 (Version 3)
Quarter: 2018Q4

REPORT INFORMATION
  Report Type: Spontaneous
  Country: GR (occurrence: GR)
  Receive Date: 20180208
  Receipt Date: 20181227
  Transmission Date: 20190204
  Serious: Yes (Disabling, Other)
  Sender: FDA-Public Use
  Company Number: GR-BAYER-2018-018072

PATIENT
  Age: 55 Year
  Sex: Female

DRUGS (2)
  1. LIPITOR [Concomitant]
     Active Substance: ATORVASTATIN CALCIUM
     Indication: BLOOD CHOLESTEROL INCREASED
  2. AVELOX [Suspect]
     Active Substance: MOXIFLOXACIN HYDROCHLORIDE
     Indication: LOWER RESPIRATORY TRACT INFECTION
     Dosage: UNK
     Route: 048
     Dates: start: 20180125, end: 20180125

REACTIONS (12)
  - Anxiety [None]
  - Vomiting [None]
  - Hyperhidrosis [None]
  - Muscular weakness [None]
  - Tinnitus [None]
  - Neuralgia [None]
  - Decreased appetite [None]
  - Neuropathy peripheral [Recovered/Resolved]
  - Muscular weakness [Not Recovered/Not Resolved]
  - Muscular weakness [None]
  - Tremor [Not Recovered/Not Resolved]
  - Mobility decreased [None]

NARRATIVE: CASE EVENT DATE: 2018
